FAERS Safety Report 5372667-5 (Version None)
Quarter: 2007Q2

REPORT INFORMATION
  Report Type: 
  Country: None (occurrence: None)
  Receive Date: 20070618
  Receipt Date: 20070508
  Transmission Date: 20071010
  Serious: Yes (Other)
  Sender: FDA-Public Use
  Company Number: 07-001038

PATIENT
  Age: 16 Year
  Sex: Female
  Weight: 45.4 kg

DRUGS (1)
  1. LOESTRIN 24 FE [Suspect]
     Indication: MENSTRUATION IRREGULAR
     Dosage: 20/1000 UG, ORAL
     Route: 048
     Dates: start: 20070301

REACTIONS (3)
  - ANOREXIA [None]
  - DEPRESSION [None]
  - WEIGHT DECREASED [None]
